FAERS Safety Report 25274690 (Version 1)
Quarter: 2025Q2

REPORT INFORMATION
  Report Type: Spontaneous
  Country: US (occurrence: US)
  Receive Date: 20250506
  Receipt Date: 20250506
  Transmission Date: 20250717
  Serious: No
  Sender: ODIN PHARMACEUTICALS
  Company Number: USA--2024-US-000265

PATIENT
  Age: 80 Year
  Sex: Female

DRUGS (3)
  1. BRIMONIDINE TARTRATE [Suspect]
     Active Substance: BRIMONIDINE TARTRATE
     Dates: start: 20240402, end: 20240406
  2. Dorzolamide+Timolol [Concomitant]
  3. BIMATOPROST [Concomitant]
     Active Substance: BIMATOPROST

REACTIONS (3)
  - Eye irritation [Recovered/Resolved]
  - Corneal oedema [Recovering/Resolving]
  - Visual impairment [Recovering/Resolving]

NARRATIVE: CASE EVENT DATE: 20240402
